FAERS Safety Report 7548865-9 (Version None)
Quarter: 2011Q2

REPORT INFORMATION
  Report Type: 
  Country: None (occurrence: None)
  Receive Date: 20110615
  Receipt Date: 20110608
  Transmission Date: 20111010
  Serious: Yes (Hospitalization)
  Sender: FDA-Public Use
  Company Number: FR-PFIZER INC-2011124398

PATIENT
  Age: 91 Year
  Sex: Female

DRUGS (7)
  1. XANAX [Suspect]
     Dosage: 0.25 MG, AS NEEDED
     Route: 048
  2. ALDACTAZIDE [Suspect]
     Dosage: 1 DF, 1X/DAY
     Route: 048
  3. MOVIPREP [Concomitant]
     Dosage: 1 DF, 1X/DAY
     Route: 048
  4. NOCTRAN 10 [Suspect]
     Dosage: 10 MG, 1X/DAY
     Route: 048
  5. ASPIRIN [Concomitant]
     Dosage: 160 MG, 1X/DAY
     Route: 048
  6. ZOLOFT [Suspect]
     Dosage: 50 MG, 1X/DAY
     Route: 048
  7. NEXIUM [Concomitant]
     Dosage: 20 MG, 1X/DAY
     Route: 048

REACTIONS (1)
  - FALL [None]
